FAERS Safety Report 7511119-0 (Version None)
Quarter: 2011Q2

REPORT INFORMATION
  Report Type: 
  Country: None (occurrence: None)
  Receive Date: 20110519
  Receipt Date: 20110510
  Transmission Date: 20111010
  Serious: Yes (Disabling)
  Sender: FDA-Public Use
  Company Number: 917307

PATIENT
  Age: 5 Year
  Sex: Male

DRUGS (12)
  1. CEFOTAXIME [Suspect]
     Indication: PNEUMONIA MYCOPLASMAL
  2. CLOBAZAM [Concomitant]
  3. LAMOTRIGINE [Suspect]
     Indication: PRODUCT USED FOR UNKNOWN INDICATION
  4. PARALDEHYDE [Concomitant]
  5. TAZOCIN [Suspect]
     Indication: PNEUMONIA MYCOPLASMAL
  6. VALPROATE SODIUM [Concomitant]
  7. PHENYTOIN [Suspect]
     Indication: FEBRILE CONVULSION
  8. GENTAMICIN SULFATE [Suspect]
     Indication: PNEUMONIA MYCOPLASMAL
  9. DIAZEPAM [Concomitant]
  10. THIOPENTAL SODIUM [Concomitant]
  11. ERYTHROMYCIN [Suspect]
     Indication: PNEUMONIA MYCOPLASMAL
  12. CLONAZEPAM [Concomitant]

REACTIONS (9)
  - HYPOTONIA [None]
  - BRAIN OEDEMA [None]
  - COGNITIVE DISORDER [None]
  - CEREBRAL ISCHAEMIA [None]
  - DYSTONIA [None]
  - MOVEMENT DISORDER [None]
  - CEREBRAL ATROPHY [None]
  - LEARNING DISORDER [None]
  - ENCEPHALOPATHY [None]
